FAERS Safety Report 11094856 (Version 2)
Quarter: 2015Q2

REPORT INFORMATION
  Report Type: Report from Study
  Country: AU (occurrence: AU)
  Receive Date: 20150506
  Receipt Date: 20150512
  Transmission Date: 20150821
  Serious: Yes (Hospitalization)
  Sender: FDA-Public Use
  Company Number: AU-TEVA-559897USA

PATIENT
  Age: 83 Year
  Sex: Male

DRUGS (3)
  1. BENDAMUSTINE HYDROCHLORIDE [Suspect]
     Active Substance: BENDAMUSTINE HYDROCHLORIDE
     Indication: MANTLE CELL LYMPHOMA
     Dosage: 171 MG, CYCLIC (ONCE EVERY 28 DAYS, ON DAY 1 AND 2)
     Route: 042
     Dates: start: 20130722, end: 20131210
  2. RITUXIMAB [Suspect]
     Active Substance: RITUXIMAB
     Indication: MANTLE CELL LYMPHOMA
     Dosage: 712.5 MG, CYCLIC (ONCE EVERY 28 DAYS FOR 6 CYCLES)
     Route: 042
     Dates: start: 20130722
  3. RITUXIMAB [Suspect]
     Active Substance: RITUXIMAB
     Dosage: 712.5 MG, 1 IN 28 DAY
     Route: 042
     Dates: start: 20150302

REACTIONS (1)
  - Subdural haematoma [Unknown]

NARRATIVE: CASE EVENT DATE: 20150416
